FAERS Safety Report 9888619 (Version 2)
Quarter: 2014Q1

REPORT INFORMATION
  Report Type: Report from Study
  Country: US (occurrence: US)
  Receive Date: 20140211
  Receipt Date: 20140211
  Transmission Date: 20141002
  Serious: Yes (Hospitalization)
  Sender: FDA-Public Use
  Company Number: US-BAYER-2013-041916

PATIENT
  Age: 68 Year
  Sex: Male
  Weight: 78 kg

DRUGS (12)
  1. ALPHARADIN [Suspect]
     Indication: PROSTATE CANCER METASTATIC
     Dosage: 50 KBQ/KG, Q 4 WEEKS
     Route: 042
     Dates: start: 20130130, end: 20130227
  2. IBUPROFEN [Concomitant]
     Indication: PAIN
     Dosage: DAILY DOSE 200 MG
     Route: 048
  3. AMBIEN [Concomitant]
     Indication: INSOMNIA
     Dosage: DAILY DOSE 10 MG
     Route: 048
  4. ASPIRIN [Concomitant]
     Indication: PRODUCT USED FOR UNKNOWN INDICATION
     Dosage: DAILY DOSE 81 MG
     Route: 048
  5. FENTANYL [Concomitant]
     Indication: PAIN
     Dosage: DAILY DOSE 12 ?G/H
     Route: 062
  6. FLONASE [Concomitant]
     Indication: PRODUCT USED FOR UNKNOWN INDICATION
     Dosage: 2 SPRAY
     Route: 045
  7. FOLIC ACID [Concomitant]
     Indication: PRODUCT USED FOR UNKNOWN INDICATION
     Dosage: DAILY DOSE .4 MG
     Route: 048
  8. LACTULOSE [Concomitant]
     Indication: CONSTIPATION
     Dosage: DAILY DOSE 15 ML
     Route: 048
  9. LEUPROLIDE ACETATE [Concomitant]
     Indication: PROSTATE CANCER
     Dosage: 22.5 MG/ 3 MONTHS
     Route: 030
  10. LISINOPRIL [Concomitant]
     Indication: HYPERTENSION
     Dosage: DAILY DOSE 40 MG
     Route: 048
  11. RITALIN [Concomitant]
     Indication: PRODUCT USED FOR UNKNOWN INDICATION
     Dosage: DAILY DOSE 10 MG
     Route: 048
  12. XGEVA [Concomitant]
     Indication: PROSTATE CANCER
     Dosage: 120 MG / 4 WK
     Route: 058

REACTIONS (1)
  - Pyrexia [Recovered/Resolved]
